FAERS Safety Report 14028394 (Version 3)
Quarter: 2017Q4

REPORT INFORMATION
  Report Type: Report from Study
  Country: US (occurrence: US)
  Receive Date: 20170930
  Receipt Date: 20171221
  Transmission Date: 20180321
  Serious: Yes (Hospitalization, Other)
  Sender: FDA-Public Use
  Company Number: US-AMGEN-USASL2017148411

PATIENT
  Age: 77 Year
  Sex: Female

DRUGS (3)
  1. VITAMIN D [Concomitant]
     Active Substance: CHOLECALCIFEROL
  2. CALCIUM W/VITAMIN B12 [Concomitant]
     Dosage: UNK UNK, QMO
  3. REPATHA [Suspect]
     Active Substance: EVOLOCUMAB
     Indication: HYPERCHOLESTEROLAEMIA
     Dosage: 140 MG, Q2WK
     Route: 065
     Dates: start: 2016, end: 201703

REACTIONS (10)
  - Compression fracture [Unknown]
  - Spinal fracture [Unknown]
  - Diverticulitis [Not Recovered/Not Resolved]
  - Memory impairment [Unknown]
  - Suicidal ideation [Unknown]
  - Road traffic accident [Unknown]
  - Back injury [Unknown]
  - Pneumonia [Unknown]
  - Neck injury [Unknown]
  - Depression [Unknown]

NARRATIVE: CASE EVENT DATE: 2017
